FAERS Safety Report 9506098 (Version 1)
Quarter: 2013Q1

REPORT INFORMATION
  Report Type: Spontaneous
  Country: US (occurrence: None)
  Receive Date: 20130301
  Receipt Date: 20130301
  Transmission Date: 20140127
  Serious: Yes (Hospitalization)
  Sender: FDA-Public Use
  Company Number: RB-43470-2012

PATIENT
  Sex: Male

DRUGS (2)
  1. SUBOXONE [Suspect]
     Indication: DRUG DEPENDENCE
     Dosage: 4 MG X 2 DOSES, 2 HOURS APART SUBLINGUAL)?
     Route: 060
     Dates: start: 20120813, end: 20120813
  2. GLUCOPHAGE [Concomitant]

REACTIONS (1)
  - Withdrawal syndrome [None]
